FAERS Safety Report 8458078-4 (Version None)
Quarter: 2012Q2

REPORT INFORMATION
  Report Type: 
  Country: None (occurrence: None)
  Receive Date: 20120622
  Receipt Date: 20120612
  Transmission Date: 20120825
  Serious: Yes (Other)
  Sender: FDA-Public Use
  Company Number: US-JNJFOC-20120606124

PATIENT
  Sex: Female
  Weight: 68.04 kg

DRUGS (3)
  1. SIMPONI [Suspect]
     Route: 058
     Dates: start: 20100401, end: 20110401
  2. TOPROL-XL [Concomitant]
     Indication: HYPERTENSION
     Route: 048
     Dates: start: 20090101
  3. SIMPONI [Suspect]
     Indication: RHEUMATOID ARTHRITIS
     Route: 058
     Dates: start: 20120301

REACTIONS (5)
  - DEVICE MALFUNCTION [None]
  - CORNEAL TRANSPLANT [None]
  - TRANSPLANT FAILURE [None]
  - DRUG DOSE OMISSION [None]
  - RHEUMATOID FACTOR INCREASED [None]
